FAERS Safety Report 5231530-0 (Version None)
Quarter: 2007Q1

REPORT INFORMATION
  Report Type: 
  Country: None (occurrence: None)
  Receive Date: 20070206
  Receipt Date: 20070123
  Transmission Date: 20070707
  Serious: Yes (Hospitalization)
  Sender: FDA-Public Use
  Company Number: US-AMGEN-US187222

PATIENT
  Sex: Female
  Weight: 111.2 kg

DRUGS (12)
  1. ENBREL [Suspect]
     Indication: RHEUMATOID ARTHRITIS
     Route: 065
     Dates: start: 19981202, end: 20060713
  2. FOSAMAX [Concomitant]
  3. ASCORBIC ACID [Concomitant]
  4. CITRACAL [Concomitant]
  5. FENTANYL TRANSDERMAL SYSTEM [Concomitant]
     Route: 061
  6. T4 [Concomitant]
  7. CYTOTEC [Concomitant]
  8. PREVACID [Concomitant]
  9. NEURONTIN [Concomitant]
  10. GLUCOPHAGE [Concomitant]
  11. AMARYL [Concomitant]
  12. CELEBREX [Concomitant]
     Route: 065

REACTIONS (3)
  - ANAEMIA [None]
  - GASTROINTESTINAL HAEMORRHAGE [None]
  - INJECTION SITE PAIN [None]
